FAERS Safety Report 8024060-4 (Version None)
Quarter: 2011Q4

REPORT INFORMATION
  Report Type: 
  Country: None (occurrence: None)
  Receive Date: 20111130
  Receipt Date: 20101028
  Transmission Date: 20120403
  Serious: Yes (Other)
  Sender: FDA-Public Use
  Company Number: 317294

PATIENT
  Age: 61 Year
  Sex: Female
  Weight: 81.2 kg

DRUGS (3)
  1. NOVOLOG [Suspect]
     Indication: TYPE 1 DIABETES MELLITUS
     Dosage: SLIDING SCALE, SUBCUTANEOUS SLIDING SCALE 1 UNIT/CARB, SUBCUTANEOUS
     Route: 058
     Dates: start: 20050101, end: 20101018
  2. NOVOLOG [Suspect]
     Indication: TYPE 1 DIABETES MELLITUS
     Dosage: SLIDING SCALE, SUBCUTANEOUS SLIDING SCALE 1 UNIT/CARB, SUBCUTANEOUS
     Route: 058
     Dates: start: 20101018
  3. LANTUS [Concomitant]

REACTIONS (2)
  - BLOOD GLUCOSE INCREASED [None]
  - HYPOGLYCAEMIC UNCONSCIOUSNESS [None]
